FAERS Safety Report 16567248 (Version 1)
Quarter: 2019Q3

REPORT INFORMATION
  Report Type: Spontaneous
  Country: DE (occurrence: DE)
  Receive Date: 20190712
  Receipt Date: 20190712
  Transmission Date: 20191004
  Serious: Yes (Hospitalization)
  Sender: FDA-Public Use
  Company Number: DE-BAYER-2019-130703

PATIENT
  Age: 77 Year
  Sex: Female

DRUGS (10)
  1. TORASEMID [Concomitant]
     Active Substance: TORSEMIDE
     Dosage: 10 MG, QD
  2. CIPROFLOXACIN. [Suspect]
     Active Substance: CIPROFLOXACIN
     Dosage: 500 MG
     Dates: end: 20180807
  3. XARELTO [Suspect]
     Active Substance: RIVAROXABAN
     Dosage: 15 MG
     Dates: end: 20170802
  4. CLEXANE [Suspect]
     Active Substance: ENOXAPARIN SODIUM
     Dosage: UNK UNK, QD
  5. METRONIDAZOL [METRONIDAZOLE] [Concomitant]
     Active Substance: METRONIDAZOLE
     Dosage: 400 MG
     Dates: end: 20170801
  6. PANTOPRAZOL [PANTOPRAZOLE] [Concomitant]
     Active Substance: PANTOPRAZOLE
     Dosage: 40 MG, BID
  7. PRENT [Concomitant]
     Dosage: 0.5 DF, QD
  8. BROMAZEPAM [Concomitant]
     Active Substance: BROMAZEPAM
     Dosage: 3 MG, QD (HALF OF A 6 MG TBALET EVERY NIGHT)
  9. MORONAL [Concomitant]
     Active Substance: NYSTATIN
     Dosage: UNK UNK, QID
  10. METAMIZOL [Concomitant]
     Active Substance: METAMIZOLE SODIUM
     Dosage: 500 MG, PRN

REACTIONS (4)
  - General physical health deterioration [Unknown]
  - Haematochezia [Unknown]
  - Anaemia [Unknown]
  - Asthenia [Unknown]
